FAERS Safety Report 7502678-2 (Version None)
Quarter: 2011Q2

REPORT INFORMATION
  Report Type: 
  Country: None (occurrence: None)
  Receive Date: 20110524
  Receipt Date: 20110524
  Transmission Date: 20111010
  Serious: Yes (Hospitalization)
  Sender: FDA-Public Use
  Company Number: None

PATIENT
  Sex: Male
  Weight: 78.6 kg

DRUGS (7)
  1. FENTYAL PATCH [Concomitant]
  2. PANITUMUMAB [Suspect]
     Indication: HEAD AND NECK CANCER
     Dosage: PANITUMUMAB 9MG/M2 3 TIMES IV
     Route: 042
     Dates: start: 20110210, end: 20110503
  3. CISPLATIN [Suspect]
     Indication: HEAD AND NECK CANCER
     Dosage: CISPLATIN 33MG/M2 WEEKLY FOR 6-7 WEEKS IV
     Route: 042
     Dates: start: 20110405, end: 20110503
  4. OXYCODONE/ACTOMINIPHIN [Concomitant]
  5. AMITRIPLYLEN [Concomitant]
  6. DEXAMETHASONE [Concomitant]
  7. ZOFRAN [Concomitant]

REACTIONS (13)
  - MUSCULAR WEAKNESS [None]
  - URINARY INCONTINENCE [None]
  - PNEUMONIA [None]
  - DELIRIUM [None]
  - LOSS OF CONSCIOUSNESS [None]
  - AGITATION [None]
  - TREMOR [None]
  - FALL [None]
  - LUNG INFECTION [None]
  - HYPOVOLAEMIA [None]
  - LUNG INFILTRATION [None]
  - CHILLS [None]
  - DIZZINESS [None]
